FAERS Safety Report 11649019 (Version 3)
Quarter: 2018Q3

REPORT INFORMATION
  Report Type: Spontaneous
  Country: BE (occurrence: BE)
  Receive Date: 20151021
  Receipt Date: 20180906
  Transmission Date: 20181010
  Serious: Yes (Hospitalization, Other)
  Sender: FDA-Public Use
  Company Number: PHHY2015BE125136

PATIENT
  Age: 75 Year
  Sex: Male

DRUGS (8)
  1. OXALIPLATIN. [Suspect]
     Active Substance: OXALIPLATIN
     Indication: COLORECTAL CANCER METASTATIC
  2. FOLINIC ACID [Suspect]
     Active Substance: LEUCOVORIN
     Indication: ADENOCARCINOMA
     Route: 065
  3. 5 FLUORO URACIL [Suspect]
     Active Substance: FLUOROURACIL
     Indication: ADENOCARCINOMA
     Route: 065
  4. 5 FLUORO URACIL [Suspect]
     Active Substance: FLUOROURACIL
     Indication: COLORECTAL CANCER METASTATIC
  5. FOLINIC ACID [Suspect]
     Active Substance: LEUCOVORIN
     Indication: METASTASES TO LIVER
  6. FOLINIC ACID [Suspect]
     Active Substance: LEUCOVORIN
     Indication: ADENOCARCINOMA OF COLON
  7. OXALIPLATIN. [Suspect]
     Active Substance: OXALIPLATIN
     Indication: ADENOCARCINOMA
     Route: 065
  8. FOLINIC ACID [Suspect]
     Active Substance: LEUCOVORIN
     Indication: COLORECTAL CANCER METASTATIC

REACTIONS (21)
  - Decreased appetite [Recovering/Resolving]
  - Intra-abdominal pressure increased [Recovering/Resolving]
  - Intestinal dilatation [Recovering/Resolving]
  - Constipation [Recovering/Resolving]
  - Polyneuropathy [Unknown]
  - Neurotoxicity [Recovering/Resolving]
  - Intestinal pseudo-obstruction [Recovering/Resolving]
  - Toxicity to various agents [Unknown]
  - Acute abdomen [Recovering/Resolving]
  - Gastrointestinal obstruction [Recovering/Resolving]
  - Peripheral sensory neuropathy [Recovering/Resolving]
  - Serum ascites albumin gradient [Recovering/Resolving]
  - Gastrointestinal hypomotility [Recovering/Resolving]
  - Venoocclusive liver disease [Unknown]
  - Vasodilatation [Recovering/Resolving]
  - Paraesthesia [Recovered/Resolved]
  - Autonomic neuropathy [Recovering/Resolving]
  - Portal hypertension [Recovering/Resolving]
  - Ascites [Recovering/Resolving]
  - Axonal neuropathy [Recovered/Resolved]
  - Weight decreased [Recovering/Resolving]
